FAERS Safety Report 11870023 (Version 1)
Quarter: 2015Q4

REPORT INFORMATION
  Report Type: Spontaneous
  Country: BR (occurrence: BR)
  Receive Date: 20151228
  Receipt Date: 20151228
  Transmission Date: 20160305
  Serious: Yes (Other)
  Sender: FDA-Public Use
  Company Number: BR-TORRENT-00003259

PATIENT
  Age: 70 Year
  Sex: Female

DRUGS (2)
  1. TORL?S [Suspect]
     Active Substance: LOSARTAN POTASSIUM
     Indication: PRODUCT USED FOR UNKNOWN INDICATION
     Dosage: TORL?S 50 MG/ NUMBER OF UNITS IS UNKNOWN/ ORAL
     Route: 048
  2. TORL?S-H [Suspect]
     Active Substance: HYDROCHLOROTHIAZIDE\LOSARTAN POTASSIUM
     Indication: PRODUCT USED FOR UNKNOWN INDICATION
     Dosage: TORL?S 50/12.5 MG/ NUMBER OF UNITS IS UNKNOWN/ ORAL
     Route: 048

REACTIONS (5)
  - Pneumonia [Not Recovered/Not Resolved]
  - Atelectasis [Not Recovered/Not Resolved]
  - Blood pressure increased [None]
  - Drug ineffective [Not Recovered/Not Resolved]
  - Pulmonary fibrosis [Not Recovered/Not Resolved]

NARRATIVE: CASE EVENT DATE: 201512
